FAERS Safety Report 10547748 (Version 1)
Quarter: 2014Q4

REPORT INFORMATION
  Report Type: Spontaneous
  Country: US (occurrence: None)
  Receive Date: 20141027
  Receipt Date: 20141027
  Transmission Date: 20150529
  Serious: Yes (Death, Hospitalization)
  Sender: FDA-Public Use
  Company Number: None

PATIENT
  Age: 60 Year
  Sex: Male
  Weight: 112.1 kg

DRUGS (1)
  1. SUNITINIB MALATE [Suspect]
     Active Substance: SUNITINIB MALATE
     Dates: start: 20140918

REACTIONS (8)
  - Metastases to lung [None]
  - Pulmonary embolism [None]
  - Lymphadenopathy [None]
  - Respiratory failure [None]
  - Cerebral haemorrhage [None]
  - Disease progression [None]
  - Malignant pleural effusion [None]
  - Lung consolidation [None]

NARRATIVE: CASE EVENT DATE: 20141016
